FAERS Safety Report 7945459-8 (Version None)
Quarter: 2011Q4

REPORT INFORMATION
  Report Type: 
  Country: None (occurrence: None)
  Receive Date: 20111129
  Receipt Date: 20111115
  Transmission Date: 20120403
  Serious: Yes (Death, Hospitalization)
  Sender: FDA-Public Use
  Company Number: US-GENZYME-CLOF-1001878

PATIENT
  Sex: Female
  Weight: 53 kg

DRUGS (5)
  1. CYTARABINE [Suspect]
     Indication: ACUTE MYELOID LEUKAEMIA
     Dosage: 100 MG/M2 OVER 24 HOURS FOR 7 DAYS (CYCLE 1)
     Route: 042
     Dates: start: 20110830
  2. CYTARABINE [Suspect]
     Dosage: 100 MG/M2 OVER 24 HOURS FOR 7 DAYS PER CYCLE (CYCLE 2)
     Route: 042
     Dates: start: 20110914, end: 20110921
  3. DAUNORUBICIN HCL [Suspect]
     Dosage: 60 MG/M2, QDX3 (CYCLE 2)
     Route: 042
     Dates: start: 20110914, end: 20110916
  4. CLOLAR [Suspect]
     Indication: ACUTE MYELOID LEUKAEMIA
     Dosage: DRUG NOT RECEIVED
     Route: 065
  5. DAUNORUBICIN HCL [Suspect]
     Indication: ACUTE MYELOID LEUKAEMIA
     Dosage: 60 MG/M2, QDX3 (CYCLE 1)
     Route: 042
     Dates: start: 20110830

REACTIONS (1)
  - HAEMORRHAGE INTRACRANIAL [None]
